FAERS Safety Report 4973226-6 (Version None)
Quarter: 2006Q2

REPORT INFORMATION
  Report Type: 
  Country: None (occurrence: None)
  Receive Date: 20060414
  Receipt Date: 20060406
  Transmission Date: 20061013
  Serious: Yes (Hospitalization)
  Sender: FDA-Public Use
  Company Number: US-MERCK-0604USA00944

PATIENT
  Age: 69 Year
  Sex: Female

DRUGS (4)
  1. ZETIA [Suspect]
     Indication: BLOOD TRIGLYCERIDES INCREASED
     Route: 048
     Dates: start: 20041101
  2. PREVACID [Concomitant]
     Route: 065
  3. PREMARIN [Concomitant]
     Route: 065
  4. MICARDIS HCT [Concomitant]
     Route: 065

REACTIONS (3)
  - ARTHROPATHY [None]
  - MYALGIA [None]
  - PAIN [None]
